FAERS Safety Report 21972812 (Version 1)
Quarter: 2023Q1

REPORT INFORMATION
  Report Type: Spontaneous
  Country: US (occurrence: US)
  Receive Date: 20230209
  Receipt Date: 20230209
  Transmission Date: 20230418
  Serious: Yes (Hospitalization, Other)
  Sender: FDA-Public Use
  Company Number: US-AMGEN-USASP2023021259

PATIENT
  Age: 81 Year
  Sex: Female

DRUGS (1)
  1. EVENITY [Suspect]
     Active Substance: ROMOSOZUMAB-AQQG
     Indication: Product used for unknown indication
     Dosage: 210 MILLIGRAM, QMO
     Route: 058
     Dates: start: 202206

REACTIONS (4)
  - Fall [Recovering/Resolving]
  - Myocardial infarction [Recovering/Resolving]
  - Hepatic cirrhosis [Recovering/Resolving]
  - Cardiac flutter [Recovering/Resolving]

NARRATIVE: CASE EVENT DATE: 20230101
